FAERS Safety Report 6504943-4 (Version None)
Quarter: 2009Q4

REPORT INFORMATION
  Report Type: 
  Country: None (occurrence: None)
  Receive Date: 20091218
  Receipt Date: 20091211
  Transmission Date: 20100525
  Serious: Yes (Death)
  Sender: FDA-Public Use
  Company Number: US-ROCHE-674683

PATIENT
  Sex: Female
  Weight: 108 kg

DRUGS (6)
  1. TOCILIZUMAB [Suspect]
     Indication: RHEUMATOID ARTHRITIS
     Dosage: FORM: INFUSION IN SALINE. FREQUENCY REPORTED AS ONCE.
     Route: 042
     Dates: start: 20090727, end: 20090911
  2. BLINDED METHOTREXATE [Suspect]
     Indication: RHEUMATOID ARTHRITIS
     Dosage: LAST DOSE PRIOR TO SAE: 18 AUG 2009. FORM: PILLS
     Route: 048
     Dates: start: 20090727, end: 20090911
  3. TEGRETOL [Concomitant]
     Route: 048
  4. PAXIL [Concomitant]
     Route: 048
  5. RISPERDAL [Concomitant]
     Route: 048
  6. REMERON [Concomitant]
     Route: 048

REACTIONS (1)
  - DEATH [None]
